FAERS Safety Report 21795809 (Version 4)
Quarter: 2023Q1

REPORT INFORMATION
  Report Type: Spontaneous
  Country: US (occurrence: US)
  Receive Date: 20221229
  Receipt Date: 20230208
  Transmission Date: 20230417
  Serious: No
  Sender: FDA-Public Use
  Company Number: US-BRISTOL-MYERS SQUIBB COMPANY-2022-160387

PATIENT
  Age: 71 Year
  Sex: Female
  Weight: 95.254 kg

DRUGS (1)
  1. REVLIMID [Suspect]
     Active Substance: LENALIDOMIDE
     Indication: Plasma cell myeloma
     Dosage: PRODUCT START DATE: 15-MAR-2020
     Route: 048
     Dates: start: 20180926

REACTIONS (3)
  - Nasopharyngitis [Recovered/Resolved]
  - Full blood count decreased [Unknown]
  - Product dose omission issue [Unknown]

NARRATIVE: CASE EVENT DATE: 20221227
